FAERS Safety Report 5939468-8 (Version None)
Quarter: 2008Q4

REPORT INFORMATION
  Report Type: 
  Country: None (occurrence: None)
  Receive Date: 20081103
  Receipt Date: 20081024
  Transmission Date: 20090506
  Serious: Yes (Hospitalization, Other)
  Sender: FDA-Public Use
  Company Number: US-ABBOTT-08P-163-0484005-00

PATIENT
  Age: 29 Year
  Sex: Female

DRUGS (19)
  1. NORVIR [Suspect]
     Indication: HIV INFECTION
     Route: 048
     Dates: start: 20080310
  2. NORVIR [Suspect]
     Indication: HUMAN IMMUNODEFICIENCY VIRUS TRANSMISSION
  3. NORVIR [Suspect]
     Indication: PROPHYLAXIS
  4. LAMIVUDINE + ZIDOVUDINE [Suspect]
     Indication: HIV INFECTION
     Dosage: FORM: 600/300
     Route: 048
     Dates: start: 20080310
  5. LAMIVUDINE + ZIDOVUDINE [Suspect]
     Indication: HUMAN IMMUNODEFICIENCY VIRUS TRANSMISSION
  6. LAMIVUDINE + ZIDOVUDINE [Suspect]
     Indication: PROPHYLAXIS
  7. ATAZANAVIR SULFATE [Suspect]
     Indication: HIV INFECTION
     Route: 048
     Dates: start: 20080310
  8. ATAZANAVIR SULFATE [Suspect]
     Indication: HUMAN IMMUNODEFICIENCY VIRUS TRANSMISSION
  9. ATAZANAVIR SULFATE [Suspect]
     Indication: PROPHYLAXIS
  10. FLUCONAZOLE [Concomitant]
     Indication: DRUG USE FOR UNKNOWN INDICATION
  11. FERROUS SULFATE [Concomitant]
     Indication: DRUG USE FOR UNKNOWN INDICATION
  12. CEPHALEXIN MONOHYDRATE [Concomitant]
     Indication: DRUG USE FOR UNKNOWN INDICATION
  13. PROMETHAZINE [Concomitant]
     Indication: DRUG USE FOR UNKNOWN INDICATION
  14. PETHIDINE HYDROCHLORIDE [Concomitant]
     Indication: DRUG USE FOR UNKNOWN INDICATION
  15. VITAMIN TAB [Concomitant]
     Indication: DRUG USE FOR UNKNOWN INDICATION
  16. FAMOTIDINE [Concomitant]
     Indication: DRUG USE FOR UNKNOWN INDICATION
  17. NITROFURANTOIN [Concomitant]
     Indication: DRUG USE FOR UNKNOWN INDICATION
  18. FLEBOBAG RING LACT [Concomitant]
     Indication: DRUG USE FOR UNKNOWN INDICATION
  19. OXYTOCIN [Concomitant]
     Indication: DRUG USE FOR UNKNOWN INDICATION

REACTIONS (8)
  - BLOOD PRESSURE INCREASED [None]
  - CHOLELITHIASIS [None]
  - FUNGAL INFECTION [None]
  - MECONIUM STAIN [None]
  - PLACENTAL DISORDER [None]
  - STAPHYLOCOCCAL INFECTION [None]
  - STREPTOCOCCAL IDENTIFICATION TEST POSITIVE [None]
  - UTERINE CONTRACTIONS DURING PREGNANCY [None]
